FAERS Safety Report 20547510 (Version 1)
Quarter: 2022Q1

REPORT INFORMATION
  Report Type: Spontaneous
  Country: FR (occurrence: None)
  Receive Date: 20220303
  Receipt Date: 20220303
  Transmission Date: 20220423
  Serious: Yes (Hospitalization)
  Sender: FDA-Public Use
  Company Number: None

PATIENT
  Age: 95 Year
  Sex: Female
  Weight: 53 kg

DRUGS (5)
  1. ONDANSETRON [Suspect]
     Active Substance: ONDANSETRON
     Indication: Diverticulitis
     Dosage: 4MG TTES LES 6H // 4 MG EVERY 6H
     Route: 040
     Dates: start: 20220215, end: 20220221
  2. ACETAMINOPHEN [Suspect]
     Active Substance: ACETAMINOPHEN
     Indication: Diverticulitis
     Dosage: 3G/J // 3G/D
     Route: 048
     Dates: start: 20220204, end: 20220221
  3. TRIMEBUTINE MALEATE [Suspect]
     Active Substance: TRIMEBUTINE MALEATE
     Indication: Diverticulitis
     Dosage: 300 MG/J // 300 MG/D
     Route: 048
     Dates: start: 20220204, end: 20220221
  4. CEFTRIAXONE [Suspect]
     Active Substance: CEFTRIAXONE
     Indication: Diverticulitis
     Route: 041
     Dates: start: 20220207, end: 20220217
  5. METRONIDAZOLE [Suspect]
     Active Substance: METRONIDAZOLE
     Indication: Diverticulitis
     Dosage: 1 COMPRIME MATIN, MIDI ET SOIR // 1 TABLET, MORNING, NOON, AND EVENING
     Route: 048
     Dates: start: 20220207, end: 20220217

REACTIONS (1)
  - Neutropenia [Not Recovered/Not Resolved]

NARRATIVE: CASE EVENT DATE: 20220217
